FAERS Safety Report 9803095 (Version 2)
Quarter: 2014Q3

REPORT INFORMATION
  Report Type: Spontaneous
  Country: US (occurrence: US)
  Receive Date: 20140108
  Receipt Date: 20140808
  Transmission Date: 20150326
  Serious: Yes (Death, Other)
  Sender: FDA-Public Use
  Company Number: US-009507513-1401USA001325

PATIENT
  Sex: Female

DRUGS (1)
  1. NUVARING [Suspect]
     Active Substance: ETHINYL ESTRADIOL\ETONOGESTREL
     Indication: CONTRACEPTION
     Dosage: INSERT 1 RING ON DAY 5 OF CYCLE, LEAVE IN 3 WEEKS, REMOVE FOR 1 WEEK
     Route: 067

REACTIONS (7)
  - Iritis [Unknown]
  - Respiratory arrest [Fatal]
  - Pathologic myopia [Unknown]
  - Pulmonary embolism [Fatal]
  - Conjunctivitis [Unknown]
  - Deep vein thrombosis [Fatal]
  - Exposure during pregnancy [Unknown]

NARRATIVE: CASE EVENT DATE: 2013
